FAERS Safety Report 18495945 (Version 1)
Quarter: 2020Q4

REPORT INFORMATION
  Report Type: Spontaneous
  Country: HR (occurrence: HR)
  Receive Date: 20201112
  Receipt Date: 20201112
  Transmission Date: 20210114
  Serious: Yes (Death, Hospitalization)
  Sender: FDA-Public Use
  Company Number: HR-TEVA-2020-HR-1848791

PATIENT
  Age: 29 Year
  Sex: Male

DRUGS (2)
  1. CICLOSPORIN [Suspect]
     Active Substance: CYCLOSPORINE
     Indication: HEPATITIS
     Dosage: 2.5-3 MG/KG TWICE DAILY, ADJUSTING TROUGH LEVELS TO 200-400 NG/ML
     Route: 065
  2. CICLOSPORIN [Suspect]
     Active Substance: CYCLOSPORINE
     Indication: APLASTIC ANAEMIA

REACTIONS (7)
  - Soft tissue infection [Fatal]
  - Disseminated intravascular coagulation [Fatal]
  - Pericoronitis [Unknown]
  - Peritonsillar abscess [Unknown]
  - Sepsis [Fatal]
  - Enterococcal infection [Fatal]
  - Obstructive airways disorder [Fatal]
